FAERS Safety Report 4356461-X (Version None)
Quarter: 2004Q2

REPORT INFORMATION
  Report Type: 
  Country: None (occurrence: None)
  Receive Date: 20040507
  Receipt Date: 20040415
  Transmission Date: 20050107
  Serious: Yes (Death, Hospitalization)
  Sender: FDA-Public Use
  Company Number: B01200301949

PATIENT
  Age: 55 Year
  Sex: Male

DRUGS (5)
  1. OXALIPLATIN - SOLUTION - 85 MG/M2 [Suspect]
     Indication: OESOPHAGEAL CANCER METASTATIC
     Dosage: 85 MG/M2 Q2W
     Route: 042
     Dates: start: 20030708, end: 20030708
  2. FLUOROURACIL [Suspect]
     Indication: OESOPHAGEAL CANCER METASTATIC
     Dosage: 400 MG/M2 IV BOLUS THEN 600 MG/M2 IV CONTINUOUS Q2W
     Route: 042
     Dates: start: 20030708, end: 20030708
  3. LEUCOVORIN CALCIUM [Suspect]
     Indication: OESOPHAGEAL CANCER METASTATIC
     Dosage: 200 MG/M2 Q2W
     Route: 042
     Dates: start: 20030708, end: 20030708
  4. SOLU-MEDROL [Concomitant]
  5. MORPHINE [Concomitant]

REACTIONS (25)
  - BACTERIAL INFECTION [None]
  - BLOOD CREATININE DECREASED [None]
  - BLOOD POTASSIUM DECREASED [None]
  - BLOOD SODIUM DECREASED [None]
  - CHEST PAIN [None]
  - CONSTIPATION [None]
  - CULTURE POSITIVE [None]
  - DRUG TOLERANCE DECREASED [None]
  - DYSPEPSIA [None]
  - DYSPHAGIA [None]
  - DYSPNOEA [None]
  - FATIGUE [None]
  - FEEDING DISORDER [None]
  - GENERAL PHYSICAL HEALTH DETERIORATION [None]
  - MALNUTRITION [None]
  - NAUSEA [None]
  - OESOPHAGITIS [None]
  - PLEURAL EFFUSION [None]
  - PLEURISY [None]
  - PYREXIA [None]
  - RADIATION INJURY [None]
  - RESPIRATORY DISTRESS [None]
  - SKIN DESQUAMATION [None]
  - ULCER [None]
  - WHITE BLOOD CELL COUNT INCREASED [None]
